FAERS Safety Report 23061232 (Version 1)
Quarter: 2023Q4

REPORT INFORMATION
  Report Type: Spontaneous
  Country: US (occurrence: US)
  Receive Date: 20231013
  Receipt Date: 20231013
  Transmission Date: 20240110
  Serious: No
  Sender: FDA-Public Use
  Company Number: US-Accord-283914

PATIENT
  Sex: Female

DRUGS (1)
  1. GLIMEPIRIDE [Suspect]
     Active Substance: GLIMEPIRIDE
     Indication: Blood glucose
     Dosage: DOUBLE DOSES

REACTIONS (1)
  - Incorrect dose administered [Unknown]
